FAERS Safety Report 10883274 (Version 1)
Quarter: 2015Q1

REPORT INFORMATION
  Report Type: Spontaneous
  Country: US (occurrence: None)
  Receive Date: 20150226
  Receipt Date: 20150226
  Transmission Date: 20150721
  Serious: Yes (Hospitalization, Disabling, Other)
  Sender: FDA-Public Use
  Company Number: None

PATIENT
  Age: 17 Year
  Sex: Female
  Weight: 48.08 kg

DRUGS (5)
  1. AMLODIPINE BESYLATE. [Concomitant]
     Active Substance: AMLODIPINE BESYLATE
  2. NECON [Concomitant]
     Active Substance: ETHINYL ESTRADIOL\NORETHINDRONE
  3. GUANFACINE. [Concomitant]
     Active Substance: GUANFACINE
  4. DEXEDRINE [Suspect]
     Active Substance: DEXTROAMPHETAMINE SULFATE
     Indication: ATTENTION DEFICIT/HYPERACTIVITY DISORDER
     Dosage: ALMOST 10 YEARS 2 PILLS ONCE DAILY
     Route: 048
  5. KRILL OIL [Concomitant]
     Active Substance: DIETARY SUPPLEMENT

REACTIONS (3)
  - Vasculitis [None]
  - IgA nephropathy [None]
  - Hypertension [None]

NARRATIVE: CASE EVENT DATE: 20150211
